FAERS Safety Report 15178891 (Version 2)
Quarter: 2018Q3

REPORT INFORMATION
  Report Type: Spontaneous
  Country: BR (occurrence: BR)
  Receive Date: 20180722
  Receipt Date: 20180906
  Transmission Date: 20181010
  Serious: Yes (Other)
  Sender: FDA-Public Use
  Company Number: BR-BRISTOL-MYERS SQUIBB COMPANY-BMS-2018-054323

PATIENT
  Age: 82 Year
  Sex: Male

DRUGS (10)
  1. CONCARDIO [Concomitant]
     Active Substance: BISOPROLOL FUMARATE
     Indication: THROMBOSIS
     Route: 065
  2. DIOSMIN [Concomitant]
     Active Substance: DIOSMIN
     Indication: THROMBOSIS
     Route: 065
  3. CONCARDIO [Concomitant]
     Active Substance: BISOPROLOL FUMARATE
     Indication: ARRHYTHMIA
     Dosage: 1 TAB, QD
     Route: 048
  4. ELIQUIS [Suspect]
     Active Substance: APIXABAN
     Indication: PRODUCT USED FOR UNKNOWN INDICATION
     Dosage: 1 DF, QD
     Route: 065
  5. ATENOLOL. [Concomitant]
     Active Substance: ATENOLOL
     Indication: ARRHYTHMIA
     Dosage: 1 DF, QD
     Route: 048
  6. BENICAR [Concomitant]
     Active Substance: OLMESARTAN MEDOXOMIL
     Indication: THROMBOSIS
     Route: 065
  7. ELIQUIS [Suspect]
     Active Substance: APIXABAN
     Indication: THROMBOSIS PROPHYLAXIS
     Dosage: 5 MG, UNK
     Route: 065
  8. ATENOLOL. [Concomitant]
     Active Substance: ATENOLOL
     Indication: THROMBOSIS
     Route: 065
  9. DIOSMIN [Concomitant]
     Active Substance: DIOSMIN
     Indication: ARRHYTHMIA
     Dosage: 100 MG, BID
     Route: 048
  10. BENICAR [Concomitant]
     Active Substance: OLMESARTAN MEDOXOMIL
     Indication: ARRHYTHMIA
     Dosage: 1 TAB, QD
     Route: 048

REACTIONS (3)
  - Dysentery [Not Recovered/Not Resolved]
  - Influenza [Not Recovered/Not Resolved]
  - Prescribed underdose [Not Recovered/Not Resolved]

NARRATIVE: CASE EVENT DATE: 201806
